FAERS Safety Report 17125602 (Version 1)
Quarter: 2019Q4

REPORT INFORMATION
  Report Type: Report from Study
  Country: US (occurrence: US)
  Receive Date: 20191208
  Receipt Date: 20191208
  Transmission Date: 20200122
  Serious: Yes (Disabling)
  Sender: FDA-Public Use
  Company Number: US-TEVA-2019-US-1001988

PATIENT
  Sex: Female

DRUGS (5)
  1. AUSTEDO [Suspect]
     Active Substance: DEUTETRABENAZINE
     Dosage: 12 MILLIGRAM DAILY; DECREASED DOSE FROM 12MG TWICE DAILY TO 6MG TWICE DAILY
     Route: 048
  2. AUSTEDO [Suspect]
     Active Substance: DEUTETRABENAZINE
     Dosage: 24 MILLIGRAM DAILY; 12MG TWICE DAILY
     Route: 048
  3. AUSTEDO [Suspect]
     Active Substance: DEUTETRABENAZINE
     Dosage: 6 MILLIGRAM DAILY; DECREASED DOSE FROM 6MG TWICE DAILY TO 6MG ONCE A DAY
     Route: 048
  4. AUSTEDO [Suspect]
     Active Substance: DEUTETRABENAZINE
     Dosage: UNKNOWN DOSAGE
     Route: 048
  5. AUSTEDO [Suspect]
     Active Substance: DEUTETRABENAZINE
     Indication: TARDIVE DYSKINESIA
     Dosage: INITIAL START, NEW TITRATING PATIENT
     Route: 048
     Dates: start: 20180118, end: 20180901

REACTIONS (3)
  - Balance disorder [Recovered/Resolved]
  - Insomnia [Recovered/Resolved]
  - Gait inability [Recovered/Resolved]
